FAERS Safety Report 4370637-7 (Version None)
Quarter: 2004Q2

REPORT INFORMATION
  Report Type: 
  Country: None (occurrence: None)
  Receive Date: 20040525
  Receipt Date: 20040512
  Transmission Date: 20050107
  Serious: Yes (Other)
  Sender: FDA-Public Use
  Company Number: JP-JNJFOC-20040503497

PATIENT
  Age: 52 Year
  Sex: Female

DRUGS (1)
  1. LEVOFLOXACIN [Suspect]
     Indication: CYSTITIS
     Dosage: 100 MG, 3 IN 1 DAY, ORAL
     Route: 048
     Dates: start: 20040422, end: 20040422

REACTIONS (5)
  - BLOOD POTASSIUM DECREASED [None]
  - BLOOD SODIUM DECREASED [None]
  - HYPOAESTHESIA [None]
  - PALPITATIONS [None]
  - RHABDOMYOLYSIS [None]
